FAERS Safety Report 20102990 (Version 3)
Quarter: 2021Q4

REPORT INFORMATION
  Report Type: Spontaneous
  Country: EE (occurrence: None)
  Receive Date: 20211123
  Receipt Date: 20211223
  Transmission Date: 20220303
  Serious: Yes (Death, Other)
  Sender: FDA-Public Use
  Company Number: 2021A821222

PATIENT
  Sex: Female
  Weight: 92 kg

DRUGS (2)
  1. OLAPARIB [Suspect]
     Active Substance: OLAPARIB
     Indication: BRCA2 gene mutation
     Route: 048
     Dates: start: 20210301, end: 202107
  2. OLAPARIB [Suspect]
     Active Substance: OLAPARIB
     Indication: Breast cancer female
     Route: 048
     Dates: start: 20210301, end: 202107

REACTIONS (1)
  - Malignant neoplasm progression [Fatal]
